FAERS Safety Report 8900692 (Version 3)
Quarter: 2012Q4

REPORT INFORMATION
  Report Type: 
  Country: US (occurrence: US)
  Receive Date: 20121109
  Receipt Date: 20121123
  Transmission Date: 20130627
  Serious: Yes (Other)
  Sender: FDA-Public Use
  Company Number: US-PFIZER INC-2012280426

PATIENT
  Age: 69 Year
  Sex: Female
  Weight: 82 kg

DRUGS (4)
  1. LYRICA [Suspect]
     Indication: FIBROMYALGIA
     Dosage: 75 mg, 2x/day
     Route: 048
  2. PROTONIX [Suspect]
     Dosage: UNK
     Dates: end: 201204
  3. SERAX [Concomitant]
     Dosage: 30 mg, 1x/day
  4. AMLODIPINE [Concomitant]
     Indication: BLOOD PRESSURE HIGH
     Dosage: 2.5 mg, 1x/day

REACTIONS (7)
  - Transient ischaemic attack [Unknown]
  - Sjogren^s syndrome [Unknown]
  - Neuropathy peripheral [Unknown]
  - Intestinal cyst [Unknown]
  - Nasal dryness [Unknown]
  - Dry mouth [Unknown]
  - Abdominal pain [Unknown]
